FAERS Safety Report 8379347-2 (Version None)
Quarter: 2012Q2

REPORT INFORMATION
  Report Type: 
  Country: None (occurrence: None)
  Receive Date: 20120523
  Receipt Date: 20120521
  Transmission Date: 20120825
  Serious: Yes (Hospitalization)
  Sender: FDA-Public Use
  Company Number: IT-BAYER-2012-049648

PATIENT
  Age: 66 Year
  Sex: Male

DRUGS (3)
  1. CIPROFLOXACIN [Suspect]
     Indication: URINARY TRACT INFECTION
     Dosage: DAILY DOSE 1000 MG
     Route: 048
     Dates: start: 20120227, end: 20120308
  2. LORAZEPAM [Concomitant]
     Dosage: DAILY DOSE 2.5 MG
     Route: 048
  3. LITHIUM CARBONATE [Concomitant]
     Indication: BIPOLAR DISORDER
     Dosage: DAILY DOSE 300 MG

REACTIONS (6)
  - LUMBOSACRAL PLEXUS INJURY [None]
  - HEAD INJURY [None]
  - MUSCULAR WEAKNESS [None]
  - FALL [None]
  - WOUND [None]
  - TENDONITIS [None]
